FAERS Safety Report 7609519-3 (Version None)
Quarter: 2011Q3

REPORT INFORMATION
  Report Type: 
  Country: None (occurrence: None)
  Receive Date: 20110714
  Receipt Date: 20110712
  Transmission Date: 20111222
  Serious: Yes (Death, Other)
  Sender: FDA-Public Use
  Company Number: PHHY2011AU62227

PATIENT
  Age: 32 Year
  Sex: Male

DRUGS (5)
  1. METHYLENEDIOXYMETHAMPHETAMINE [Interacting]
     Dosage: UNK
  2. ALPRAZOLAM [Suspect]
     Dosage: UNK
  3. DIAZEPAM [Interacting]
     Dosage: UNK
  4. METHAMPHETAMINE HYDROCHLORIDE [Interacting]
     Dosage: UNK
  5. METHADONE HCL [Interacting]
     Dosage: UNK

REACTIONS (3)
  - MULTIPLE INJURIES [None]
  - HEPATITIS C [None]
  - DRUG INTERACTION [None]
